FAERS Safety Report 4496110-3 (Version None)
Quarter: 2004Q4

REPORT INFORMATION
  Report Type: 
  Country: None (occurrence: None)
  Receive Date: 20041108
  Receipt Date: 20041101
  Transmission Date: 20050328
  Serious: Yes (Disabling)
  Sender: FDA-Public Use
  Company Number: GB-MERCK-0411GBR00034

PATIENT
  Age: 68 Year
  Sex: Female

DRUGS (3)
  1. VIOXX [Suspect]
     Indication: OSTEOARTHRITIS GENERALISED
     Route: 048
     Dates: start: 20030709, end: 20041011
  2. ATENOLOL [Concomitant]
     Indication: HYPERTENSION
     Route: 048
     Dates: start: 20020920
  3. BENDROFLUMETHIAZIDE [Concomitant]
     Indication: HYPERTENSION
     Route: 048
     Dates: start: 20040109

REACTIONS (3)
  - CEREBRAL INFARCTION [None]
  - CONFUSIONAL STATE [None]
  - DYSPHAGIA [None]
